FAERS Safety Report 7367973-9 (Version None)
Quarter: 2011Q1

REPORT INFORMATION
  Report Type: 
  Country: None (occurrence: None)
  Receive Date: 20110322
  Receipt Date: 20110318
  Transmission Date: 20110831
  Serious: Yes (Death, Other)
  Sender: FDA-Public Use
  Company Number: PHHY2011AR22663

PATIENT
  Sex: Male

DRUGS (1)
  1. DIOVAN [Suspect]
     Indication: HYPERTENSION

REACTIONS (4)
  - MALAISE [None]
  - CEREBRAL ISCHAEMIA [None]
  - BRAIN NEOPLASM [None]
  - BLINDNESS [None]
